FAERS Safety Report 6084344-6 (Version None)
Quarter: 2009Q1

REPORT INFORMATION
  Report Type: 
  Country: None (occurrence: None)
  Receive Date: 20090219
  Receipt Date: 20090210
  Transmission Date: 20090719
  Serious: Yes (Death, Hospitalization)
  Sender: FDA-Public Use
  Company Number: PR-BAXTER-2009BH002321

PATIENT
  Age: 68 Year
  Sex: Male

DRUGS (2)
  1. HEPARIN SODIUM INJECTION [Suspect]
     Indication: DIALYSIS
     Route: 042
     Dates: start: 20080107, end: 20080110
  2. ANTIBIOTICS [Concomitant]
     Indication: DRUG USE FOR UNKNOWN INDICATION
     Route: 065

REACTIONS (3)
  - HAEMORRHAGE [None]
  - OEDEMA [None]
  - RESPIRATORY FAILURE [None]
